FAERS Safety Report 7715457-8 (Version None)
Quarter: 2011Q3

REPORT INFORMATION
  Report Type: 
  Country: None (occurrence: None)
  Receive Date: 20110829
  Receipt Date: 20110820
  Transmission Date: 20111222
  Serious: Yes (Other)
  Sender: FDA-Public Use
  Company Number: US-JNJFOC-20110701787

PATIENT
  Sex: Male

DRUGS (2)
  1. FENTANYL [Suspect]
     Indication: SICKLE CELL ANAEMIA
     Route: 062
     Dates: start: 20100101, end: 20110101
  2. MORPHINE [Concomitant]
     Indication: PAIN
     Route: 048

REACTIONS (11)
  - URINARY RETENTION [None]
  - RASH GENERALISED [None]
  - FLUID RETENTION [None]
  - PRURITUS [None]
  - SKIN LESION [None]
  - SCAB [None]
  - SWELLING [None]
  - MICTURITION URGENCY [None]
  - INAPPROPRIATE SCHEDULE OF DRUG ADMINISTRATION [None]
  - APPLICATION SITE REACTION [None]
  - RASH PUSTULAR [None]
